FAERS Safety Report 24647445 (Version 1)
Quarter: 2024Q4

REPORT INFORMATION
  Report Type: Report from Study
  Country: CN (occurrence: CN)
  Receive Date: 20241121
  Receipt Date: 20241121
  Transmission Date: 20250114
  Serious: Yes (Hospitalization)
  Sender: ELI LILLY AND COMPANY
  Company Number: CN-ELI_LILLY_AND_COMPANY-CN202411005931

PATIENT
  Age: 70 Year
  Sex: Male

DRUGS (2)
  1. CYRAMZA [Suspect]
     Active Substance: RAMUCIRUMAB
     Indication: Gastric cancer
     Dosage: 440 MG, OTHER (D1)
     Route: 041
     Dates: start: 20240923
  2. PACLITAXEL [Concomitant]
     Active Substance: PACLITAXEL
     Indication: Gastric cancer
     Dosage: 200 MG, OTHER (D1,8)
     Route: 041
     Dates: start: 20240923

REACTIONS (20)
  - Lymphocyte count decreased [Unknown]
  - Neutrophil count increased [Unknown]
  - Fibrinogen degradation products increased [Unknown]
  - Laboratory test abnormal [Unknown]
  - Interleukin level increased [Unknown]
  - Prealbumin decreased [Unknown]
  - Blood alkaline phosphatase increased [Unknown]
  - Gamma-glutamyltransferase increased [Unknown]
  - Bile acids increased [Unknown]
  - Glycocholic acid increased [Unknown]
  - Protein total decreased [Unknown]
  - Cystatin C increased [Unknown]
  - Carbohydrate antigen 19-9 increased [Unknown]
  - Carcinoembryonic antigen increased [Unknown]
  - Squamous cell carcinoma antigen increased [Unknown]
  - Red blood cell count decreased [Unknown]
  - Haematocrit decreased [Unknown]
  - Haemoglobin decreased [Unknown]
  - Blood albumin decreased [Unknown]
  - Blood potassium decreased [Unknown]

NARRATIVE: CASE EVENT DATE: 20241107
